FAERS Safety Report 4286746-7 (Version None)
Quarter: 2004Q1

REPORT INFORMATION
  Report Type: 
  Country: None (occurrence: None)
  Receive Date: 20040206
  Receipt Date: 20040126
  Transmission Date: 20041129
  Serious: Yes (Other)
  Sender: FDA-Public Use
  Company Number: GB-GLAXOSMITHKLINE-B0321125A

PATIENT
  Age: 25 Year
  Sex: Male

DRUGS (2)
  1. ZYBAN [Suspect]
     Indication: SMOKING CESSATION THERAPY
     Dosage: 150MG SEE DOSAGE TEXT
     Route: 048
     Dates: start: 20020118, end: 20020123
  2. NICOTINELL [Concomitant]
     Route: 062
     Dates: start: 20020122

REACTIONS (2)
  - HALLUCINATION, VISUAL [None]
  - MUSCLE SPASMS [None]
